FAERS Safety Report 9453889 (Version 1)
Quarter: 2013Q3

REPORT INFORMATION
  Report Type: Spontaneous
  Country: US (occurrence: US)
  Receive Date: 20130812
  Receipt Date: 20130812
  Transmission Date: 20140515
  Serious: No
  Sender: FDA-Public Use
  Company Number: US-B.I. PHARMACEUTICALS,INC./RIDGEFIELD-2013-BI-23956BP

PATIENT
  Age: 85 Year
  Sex: Female
  Weight: 63 kg

DRUGS (4)
  1. COMBIVENT [Suspect]
     Indication: CHRONIC OBSTRUCTIVE PULMONARY DISEASE
     Dosage: STRENGTH: 20 MCG/100 MCG; DAILY DOSE: 80 MCG/400 MCG
     Route: 055
     Dates: start: 20130625
  2. NITROGLYCERINE [Concomitant]
     Indication: ARTERIAL OCCLUSIVE DISEASE
     Dosage: 0.2 MG
     Route: 061
  3. FUROSEMIDE [Concomitant]
     Indication: HYPERTENSION
     Dosage: 20 MG
     Route: 048
  4. CARVEDILOL [Concomitant]
     Indication: CARDIAC DISORDER
     Dosage: 6.5 MG
     Route: 048

REACTIONS (5)
  - Glossodynia [Not Recovered/Not Resolved]
  - Gingival inflammation [Not Recovered/Not Resolved]
  - Dizziness [Recovered/Resolved]
  - Wheezing [Not Recovered/Not Resolved]
  - Oral discomfort [Not Recovered/Not Resolved]
